FAERS Safety Report 4840035-8 (Version None)
Quarter: 2005Q4

REPORT INFORMATION
  Report Type: 
  Country: None (occurrence: None)
  Receive Date: 20051125
  Receipt Date: 20051111
  Transmission Date: 20060501
  Serious: Yes (Death)
  Sender: FDA-Public Use
  Company Number: 200509917

PATIENT
  Age: 63 Year
  Sex: Male

DRUGS (2)
  1. BOTOX [Suspect]
     Indication: PARKINSON'S DISEASE
  2. BOTOX [Suspect]
     Indication: PROGRESSIVE SUPRANUCLEAR PALSY

REACTIONS (2)
  - CARDIAC ARREST [None]
  - HYPOTENSION [None]
